FAERS Safety Report 13810453 (Version 7)
Quarter: 2018Q4

REPORT INFORMATION
  Report Type: Report from Study
  Country: US (occurrence: US)
  Receive Date: 20170728
  Receipt Date: 20181022
  Transmission Date: 20190204
  Serious: Yes (Hospitalization)
  Sender: FDA-Public Use
  Company Number: US-ACTELION-A-US2016-134768

PATIENT
  Age: 51 Year
  Sex: Female

DRUGS (39)
  1. GABAPEN [Concomitant]
     Active Substance: GABAPENTIN
     Dosage: 100 UNK, UNK
  2. NEURONTIN [Concomitant]
     Active Substance: GABAPENTIN
     Dosage: 800 MG, UNK
     Dates: start: 20150828
  3. METOPROLOL SUCCINATE. [Concomitant]
     Active Substance: METOPROLOL SUCCINATE
     Dosage: 25 MG, UNK
     Dates: start: 20150828
  4. ACIDOPHILUS PROBIOTIC [Concomitant]
     Dosage: 100 MG, UNK
     Dates: start: 20150828
  5. CRANBERRY. [Concomitant]
     Active Substance: CRANBERRY
     Dosage: 250 MG, UNK
     Dates: start: 20150828
  6. CYCLOBENZAPRINE. [Concomitant]
     Active Substance: CYCLOBENZAPRINE
     Dosage: 10 MG, PRN
     Dates: start: 20150828
  7. SYNTHROID [Concomitant]
     Active Substance: LEVOTHYROXINE SODIUM
     Dosage: 50 MCG, UNK
     Dates: start: 20150828
  8. OPSUMIT [Suspect]
     Active Substance: MACITENTAN
     Indication: PULMONARY ARTERIAL HYPERTENSION
     Dosage: 10 MG, QD
     Route: 048
     Dates: start: 20160804
  9. VITAMIN C [Concomitant]
     Active Substance: ASCORBIC ACID
     Dosage: 80 MG, UNK
     Route: 048
     Dates: start: 20150828
  10. LORAZEPAM. [Concomitant]
     Active Substance: LORAZEPAM
     Dosage: 25 MG/ML, PRN
     Dates: start: 20150828
  11. LEVOXYL [Concomitant]
     Active Substance: LEVOTHYROXINE SODIUM
     Dosage: 175 MCG, UNK
  12. PROMETHAZINE [Concomitant]
     Active Substance: PROMETHAZINE\PROMETHAZINE HYDROCHLORIDE
     Dosage: 25 MG, UNK
  13. PROAIR HFA [Concomitant]
     Active Substance: ALBUTEROL SULFATE
  14. DICYCLOMINE [Concomitant]
     Active Substance: DICYCLOMINE HYDROCHLORIDE
     Dosage: 20 MG, UNK
  15. LOVASTATIN ACTAVIS [Concomitant]
     Dosage: 20 MG, UNK
     Dates: start: 20180727
  16. POTASSIUM CHLORIDE. [Concomitant]
     Active Substance: POTASSIUM CHLORIDE
     Dosage: 10 MEQ, UNK
     Dates: start: 20180424
  17. PIROXICAM. [Concomitant]
     Active Substance: PIROXICAM
     Dosage: 20 MG, UNK
  18. CYTOMEL [Concomitant]
     Active Substance: LIOTHYRONINE SODIUM
     Dosage: 25 MCG, UNK
  19. SILDENAFIL. [Suspect]
     Active Substance: SILDENAFIL
     Indication: PRODUCT USED FOR UNKNOWN INDICATION
     Dosage: 20 MG, QD
     Route: 065
     Dates: start: 20170505
  20. GABAPEN [Concomitant]
     Active Substance: GABAPENTIN
     Dosage: 800 MG, UNK
     Dates: start: 20180516
  21. ZOFRAN [Concomitant]
     Active Substance: ONDANSETRON HYDROCHLORIDE
     Dosage: 4 MG, UNK
     Dates: start: 20150828
  22. LOVASTATIN ACTAVIS [Concomitant]
     Dosage: 20 MG, UNK
     Dates: start: 20180221
  23. ALPRAZOLAM. [Concomitant]
     Active Substance: ALPRAZOLAM
  24. METOPROLOL SUCCINATE. [Concomitant]
     Active Substance: METOPROLOL SUCCINATE
     Dosage: 25 MG, UNK
     Dates: start: 20180727
  25. FUROSEMIDE. [Concomitant]
     Active Substance: FUROSEMIDE
     Dosage: 20 MG, UNK
     Dates: start: 20180112
  26. CYCLOBENZAPRINE. [Concomitant]
     Active Substance: CYCLOBENZAPRINE
     Dosage: 10 MG, UNK
  27. LOVASTATIN ACTAVIS [Concomitant]
     Dosage: 20 MG, UNK
     Dates: start: 20180729
  28. GABAPEN [Concomitant]
     Active Substance: GABAPENTIN
     Dosage: 600 MG, UNK
     Dates: start: 20180208
  29. METOPROLOL SUCCINATE. [Concomitant]
     Active Substance: METOPROLOL SUCCINATE
     Dosage: 25 MG, UNK
     Dates: start: 20180424
  30. MULTIVITAMIN [Concomitant]
     Active Substance: VITAMINS
     Dosage: UNK
     Dates: start: 20150828
  31. LOVASTATIN ACTAVIS [Concomitant]
     Dosage: 20 MG, UNK
     Dates: start: 20170505
  32. TRAMADOL. [Concomitant]
     Active Substance: TRAMADOL
  33. LEVOXYL [Concomitant]
     Active Substance: LEVOTHYROXINE SODIUM
     Dosage: 150 MCG, UNK
  34. FUROSEMIDE. [Concomitant]
     Active Substance: FUROSEMIDE
     Dosage: 10 MG/ML
     Dates: start: 20150828
  35. PREDNISONE. [Concomitant]
     Active Substance: PREDNISONE
     Dosage: 20 MG, UNK
     Dates: start: 20170405
  36. METRONIDAZOLE. [Concomitant]
     Active Substance: METRONIDAZOLE
     Dosage: 500 MG, UNK
  37. LIDOCAINE. [Concomitant]
     Active Substance: LIDOCAINE
  38. LEVOTHYROXINE SODIUM. [Concomitant]
     Active Substance: LEVOTHYROXINE SODIUM
  39. RIZATRIPTAN. [Concomitant]
     Active Substance: RIZATRIPTAN

REACTIONS (26)
  - Sinusitis [Unknown]
  - Dyspnoea [Not Recovered/Not Resolved]
  - External ear disorder [Unknown]
  - Fall [Unknown]
  - Limb injury [Unknown]
  - Upper respiratory tract infection [Unknown]
  - Product dose omission [Recovered/Resolved]
  - Hypotension [Unknown]
  - Musculoskeletal chest pain [Unknown]
  - Rhinitis [Unknown]
  - Dizziness [Unknown]
  - Sneezing [Unknown]
  - Anxiety disorder [Unknown]
  - Headache [Unknown]
  - Sinus headache [Unknown]
  - Pyrexia [Unknown]
  - Viral infection [Unknown]
  - Hypersensitivity [Unknown]
  - Staphylococcus test positive [Unknown]
  - Vertigo [Unknown]
  - Productive cough [Unknown]
  - Rhinorrhoea [Unknown]
  - Nasal discharge discolouration [Unknown]
  - Sputum discoloured [Unknown]
  - Heart rate increased [Not Recovered/Not Resolved]
  - Type IIa hyperlipidaemia [Unknown]

NARRATIVE: CASE EVENT DATE: 20161003
